FAERS Safety Report 24744677 (Version 1)
Quarter: 2024Q4

REPORT INFORMATION
  Report Type: Spontaneous
  Country: ES (occurrence: ES)
  Receive Date: 20241217
  Receipt Date: 20241217
  Transmission Date: 20250114
  Serious: Yes (Other)
  Sender: TEVA
  Company Number: None

PATIENT
  Age: 55 Year
  Sex: Male

DRUGS (2)
  1. DULOXETINE [Suspect]
     Active Substance: DULOXETINE
     Indication: Anxiety
     Dosage: DULOXETINA (7421A)
     Route: 048
     Dates: start: 20241016, end: 20241019
  2. TEPAZEPAN [Concomitant]
     Indication: Product used for unknown indication
     Dosage: 30 CAPSULES
     Route: 048
     Dates: start: 20210702

REACTIONS (1)
  - Hyponatraemia [Recovered/Resolved]

NARRATIVE: CASE EVENT DATE: 20241019
